FAERS Safety Report 10666385 (Version 1)
Quarter: 2014Q4

REPORT INFORMATION
  Report Type: Spontaneous
  Country: US (occurrence: US)
  Receive Date: 20141220
  Receipt Date: 20141220
  Transmission Date: 20150529
  Serious: Yes (Other)
  Sender: FDA-Public Use
  Company Number: US-BAUSCH-SYM-2014-21524

PATIENT
  Sex: Male

DRUGS (4)
  1. XENAZINE [Suspect]
     Active Substance: TETRABENAZINE
     Indication: HUNTINGTON^S DISEASE
     Dosage: 1 TABLET, ONCE DAILY
     Route: 048
     Dates: start: 20140508, end: 201405
  2. XENAZINE [Suspect]
     Active Substance: TETRABENAZINE
     Dosage: 1 TABLET, 2 TIMES DAILY IN WEEK 2
     Route: 048
     Dates: start: 201405, end: 201405
  3. XENAZINE [Suspect]
     Active Substance: TETRABENAZINE
     Dosage: 25MG QAM AND 12.5MG QPM IN WEEK 3
     Route: 048
     Dates: start: 201405, end: 201405
  4. XENAZINE [Suspect]
     Active Substance: TETRABENAZINE
     Dosage: 2 TABLETS, TWICE DAILY IN WEEK 4
     Route: 048
     Dates: start: 2014

REACTIONS (2)
  - Depression [Unknown]
  - Suicidal ideation [Unknown]
